FAERS Safety Report 7072432-7 (Version None)
Quarter: 2010Q4

REPORT INFORMATION
  Report Type: 
  Country: None (occurrence: None)
  Receive Date: 20101029
  Receipt Date: 20100126
  Transmission Date: 20110411
  Serious: No
  Sender: FDA-Public Use
  Company Number: A0841481A

PATIENT
  Sex: Female

DRUGS (5)
  1. ADVAIR DISKUS 100/50 [Suspect]
     Indication: COUGH
     Route: 055
     Dates: start: 20091201
  2. BLOOD PRESSURE MEDICATION [Concomitant]
  3. VALIUM [Concomitant]
  4. HEART MEDICATION [Concomitant]
  5. UNKNOWN MEDICATION [Concomitant]
     Indication: GLAUCOMA

REACTIONS (1)
  - CONSTIPATION [None]
